FAERS Safety Report 26004751 (Version 4)
Quarter: 2025Q4

REPORT INFORMATION
  Report Type: Report from Study
  Country: CA (occurrence: CA)
  Receive Date: 20251106
  Receipt Date: 20251224
  Transmission Date: 20260117
  Serious: Yes (Hospitalization, Other)
  Sender: TAKEDA
  Company Number: CA-TAKEDA-2025TUS095913

PATIENT
  Age: 55 Year
  Sex: Female

DRUGS (4)
  1. VEDOLIZUMAB [Suspect]
     Active Substance: VEDOLIZUMAB
     Indication: Crohn^s disease
     Dosage: 300 MILLIGRAM
  2. VEDOLIZUMAB [Suspect]
     Active Substance: VEDOLIZUMAB
     Dosage: 300 MILLIGRAM
  3. PENTASA [Concomitant]
     Active Substance: MESALAMINE
     Dosage: 3 GRAM
  4. PREDNISONE [Concomitant]
     Active Substance: PREDNISONE
     Dosage: UNK

REACTIONS (14)
  - Crohn^s disease [Recovering/Resolving]
  - Peripheral swelling [Recovering/Resolving]
  - Oedema peripheral [Unknown]
  - Urticaria [Unknown]
  - Arthralgia [Recovering/Resolving]
  - Myalgia [Unknown]
  - Pain in jaw [Unknown]
  - Feeling abnormal [Unknown]
  - Skin mass [Unknown]
  - Erythema nodosum [Unknown]
  - Weight decreased [Unknown]
  - Fatigue [Unknown]
  - Rash [Unknown]
  - Pain in extremity [Recovered/Resolved]
